FAERS Safety Report 17546385 (Version 1)
Quarter: 2020Q1

REPORT INFORMATION
  Report Type: Spontaneous
  Country: US (occurrence: US)
  Receive Date: 20200316
  Receipt Date: 20200316
  Transmission Date: 20200409
  Serious: Yes (Other)
  Sender: FDA-Public Use
  Company Number: None

PATIENT
  Age: 19 Month
  Sex: Male
  Weight: 12 kg

DRUGS (3)
  1. EMICIZUMAB. [Concomitant]
     Active Substance: EMICIZUMAB
     Dates: start: 20190530
  2. ELOCTATE [Suspect]
     Active Substance: (1-743)-(1638-2332)-BLOOD-COAGULATION FACTOR VIII (SYNTHETIC HUMAN) FUSION PROTEIN WITH IMMUNOGLOBULIN G1 (SYNTHETIC HUMAN FC DOMAIN FRAGMENT), (1444-6^),(1447-9^)-BIS(DISULFIDE) WITH IMMUNOGLOBULIN G1 (SYNTHETIC HUMAN FC DOMAIN FRAGMENT)
     Indication: FACTOR VIII DEFICIENCY
     Dates: start: 20190211, end: 20191125
  3. AMICAR [Concomitant]
     Active Substance: AMINOCAPROIC ACID
     Dates: start: 20191124

REACTIONS (1)
  - Anti factor VIII antibody positive [None]

NARRATIVE: CASE EVENT DATE: 20200224
